FAERS Safety Report 7971977-2 (Version None)
Quarter: 2011Q4

REPORT INFORMATION
  Report Type: 
  Country: None (occurrence: None)
  Receive Date: 20111212
  Receipt Date: 20111207
  Transmission Date: 20120403
  Serious: Yes (Life-Threatening)
  Sender: FDA-Public Use
  Company Number: CN-ASTRAZENECA-2011SE73996

PATIENT
  Sex: Female

DRUGS (4)
  1. PROPOFOL [Suspect]
     Indication: ANAESTHESIA
     Route: 042
  2. FENTANYL [Suspect]
     Indication: ANAESTHESIA
     Route: 042
  3. DOXAPRAM HYDROCHLORIDE [Suspect]
     Indication: ANAESTHESIA
     Route: 042
  4. SODIUM CHLORIDE [Suspect]
     Route: 042

REACTIONS (2)
  - RESPIRATORY ARREST [None]
  - RESPIRATORY DEPRESSION [None]
